FAERS Safety Report 5273968-1 (Version None)
Quarter: 2007Q1

REPORT INFORMATION
  Report Type: 
  Country: None (occurrence: None)
  Receive Date: 20070323
  Receipt Date: 20070320
  Transmission Date: 20070707
  Serious: Yes (Other)
  Sender: FDA-Public Use
  Company Number: US-GLAXOSMITHKLINE-A0643903A

PATIENT
  Sex: Female

DRUGS (5)
  1. COREG [Suspect]
     Indication: HYPERTENSION
     Dosage: 12.5MG TWICE PER DAY
     Route: 048
     Dates: start: 20050101
  2. DIAVAN [Concomitant]
  3. MULTI-VITAMIN [Concomitant]
  4. COD LIVER OIL [Concomitant]
  5. CELEBREX [Concomitant]

REACTIONS (2)
  - HEPATIC ENZYME INCREASED [None]
  - PARAESTHESIA [None]
